FAERS Safety Report 15293239 (Version 2)
Quarter: 2018Q4

REPORT INFORMATION
  Report Type: Spontaneous
  Country: US (occurrence: US)
  Receive Date: 20180820
  Receipt Date: 20181031
  Transmission Date: 20190204
  Serious: Yes (Hospitalization, Other)
  Sender: FDA-Public Use
  Company Number: US-JNJFOC-20180812443

PATIENT
  Sex: Female

DRUGS (1)
  1. JBABY BABY POWDER UNSPECIFIED (ZINC OXIDE) [Suspect]
     Active Substance: ZINC OXIDE
     Indication: PRODUCT USED FOR UNKNOWN INDICATION
     Dosage: AS MUCH AS SHE NEEDED, ONCE TO WHEN NEEDED
     Route: 061

REACTIONS (7)
  - Uterine cancer [Recovered/Resolved]
  - Ovarian cancer [Recovered/Resolved]
  - Intentional product use issue [Unknown]
  - Skin cancer [Unknown]
  - Abortion spontaneous [Unknown]
  - Bile duct cancer [Recovered/Resolved]
  - Exposure during pregnancy [Recovered/Resolved]

NARRATIVE: CASE EVENT DATE: 2001
